FAERS Safety Report 18181756 (Version 1)
Quarter: 2020Q3

REPORT INFORMATION
  Report Type: Not Available
  Country: US (occurrence: US)
  Receive Date: 20200821
  Receipt Date: 20200821
  Transmission Date: 20201103
  Serious: No
  Sender: FDA-Public Use
  Company Number: US-NEUROCRINE BIOSCIENCES INC.-2020NBI02890

PATIENT
  Age: 33 Year
  Sex: Female

DRUGS (6)
  1. ETHOSUXIMIDE. [Concomitant]
     Active Substance: ETHOSUXIMIDE
  2. LOESTRIN NOS [Concomitant]
     Active Substance: ETHINYL ESTRADIOL\NORETHINDRONE ACETATE
  3. KEPPRA [Concomitant]
     Active Substance: LEVETIRACETAM
  4. CLARITIN [Concomitant]
     Active Substance: LORATADINE
  5. INGREZZA [Suspect]
     Active Substance: VALBENAZINE
     Indication: TARDIVE DYSKINESIA
     Route: 048
     Dates: start: 20190517
  6. VITAMIN D [Concomitant]
     Active Substance: VITAMIN D NOS

REACTIONS (2)
  - Mastication disorder [Not Recovered/Not Resolved]
  - Fall [Not Recovered/Not Resolved]
